FAERS Safety Report 9579409 (Version 2)
Quarter: 2013Q4

REPORT INFORMATION
  Report Type: Spontaneous
  Country: US (occurrence: US)
  Receive Date: 20131001
  Receipt Date: 20131001
  Transmission Date: 20140711
  Serious: No
  Sender: FDA-Public Use
  Company Number: US-AMGEN-USASP2013017531

PATIENT
  Age: 82 Year
  Sex: Female
  Weight: 97.96 kg

DRUGS (16)
  1. ENBREL [Suspect]
     Indication: RHEUMATOID ARTHRITIS
     Dosage: 50 MG, QWK
     Route: 058
  2. METFORMIN [Concomitant]
     Dosage: 500 MG, UNK
     Route: 048
  3. GLYBURIDE [Concomitant]
     Dosage: 2.5 MG, UNK
     Route: 048
  4. LOSARTAN POTASSIUM [Concomitant]
     Dosage: 25 MG, UNK
     Route: 048
  5. CETIRIZINE                         /00884302/ [Concomitant]
     Dosage: 10 MG, UNK
     Route: 048
  6. ATENOLOL [Concomitant]
     Dosage: 50 MG, UNK
     Route: 048
  7. NIFEDICAL XL [Concomitant]
     Dosage: 30 MG, UNK
     Route: 048
  8. ACTOS [Concomitant]
     Dosage: 45 MG, UNK
     Route: 048
  9. PRAVASTATIN [Concomitant]
     Dosage: 80 MG, UNK
     Route: 048
  10. ZETIA [Concomitant]
     Dosage: 10 MG, UNK
     Route: 048
  11. AMITRIPTYLIN [Concomitant]
     Dosage: 50 MG, UNK
     Route: 048
  12. DULCOLAX                           /00064401/ [Concomitant]
     Dosage: 10 MG, UNK
     Route: 054
  13. ASPIRIN [Concomitant]
     Dosage: 81 MG, UNK
     Route: 048
  14. CALCIUM MAGNESIUM + ZINC [Concomitant]
     Dosage: UNK
     Route: 048
  15. VITAMIN C                          /00008001/ [Concomitant]
     Dosage: 500 MG, UNK
     Route: 048
  16. ALEVE [Concomitant]
     Dosage: 220 MG, UNK
     Route: 048

REACTIONS (1)
  - Cystitis [Unknown]
